FAERS Safety Report 14727209 (Version 1)
Quarter: 2018Q2

REPORT INFORMATION
  Report Type: Spontaneous
  Country: FR (occurrence: FR)
  Receive Date: 20180406
  Receipt Date: 20180406
  Transmission Date: 20180711
  Serious: Yes (Disabling)
  Sender: FDA-Public Use
  Company Number: FR-CELGENEUS-FRA-20180309268

PATIENT
  Age: 66 Year
  Sex: Male
  Weight: 71 kg

DRUGS (3)
  1. NEODEX [Concomitant]
     Active Substance: DEXAMETHASONE\NEOMYCIN
     Indication: PLASMA CELL MYELOMA
     Dosage: 5.7143 MILLIGRAM
     Route: 048
     Dates: start: 20170707
  2. REVLIMID [Suspect]
     Active Substance: LENALIDOMIDE
     Indication: PLASMA CELL MYELOMA
     Dosage: 17.5 MILLIGRAM
     Route: 048
     Dates: start: 20170707
  3. NINLARO [Concomitant]
     Active Substance: IXAZOMIB CITRATE
     Indication: PLASMA CELL MYELOMA
     Dosage: .5714 MILLIGRAM
     Route: 048
     Dates: start: 201710

REACTIONS (5)
  - Keratitis [Not Recovered/Not Resolved]
  - Conjunctivitis [Not Recovered/Not Resolved]
  - Visual acuity reduced [Not Recovered/Not Resolved]
  - Corneal oedema [Not Recovered/Not Resolved]
  - Cataract [Not Recovered/Not Resolved]

NARRATIVE: CASE EVENT DATE: 201711
